FAERS Safety Report 4316235-2 (Version None)
Quarter: 2004Q1

REPORT INFORMATION
  Report Type: 
  Country: None (occurrence: None)
  Receive Date: 20040312
  Receipt Date: 20040210
  Transmission Date: 20041129
  Serious: Yes (Other)
  Sender: FDA-Public Use
  Company Number: JP-ROCHE-359045

PATIENT
  Age: 79 Year
  Sex: Female
  Weight: 48 kg

DRUGS (5)
  1. TAMIFLU [Suspect]
     Dosage: 7 CAPSULES IN TOTAL.
     Route: 048
     Dates: start: 20040204, end: 20040206
  2. ALPHACALCIDOL [Concomitant]
     Dosage: TRADE NAME: CALFINA.
     Route: 048
     Dates: start: 20011015
  3. NIFESLOW [Concomitant]
     Route: 048
     Dates: start: 20011015
  4. PL [Concomitant]
     Route: 048
     Dates: start: 20040202, end: 20040204
  5. GATIFLO [Concomitant]
     Route: 048
     Dates: start: 20040202, end: 20040204

REACTIONS (2)
  - DELUSION [None]
  - HALLUCINATION [None]
